FAERS Safety Report 9775662 (Version 1)
Quarter: 2013Q4

REPORT INFORMATION
  Report Type: Spontaneous
  Country: US (occurrence: US)
  Receive Date: 20131220
  Receipt Date: 20131220
  Transmission Date: 20140711
  Serious: Yes (Death, Other)
  Sender: FDA-Public Use
  Company Number: US-PFIZER INC-2013364156

PATIENT
  Age: 50 Year
  Sex: Male

DRUGS (1)
  1. CHANTIX [Suspect]
     Dosage: UNK

REACTIONS (5)
  - Death [Fatal]
  - Type 2 diabetes mellitus [Unknown]
  - Coronary artery disease [Unknown]
  - Hypertension [Unknown]
  - Hyperlipidaemia [Unknown]
